FAERS Safety Report 18876586 (Version 1)
Quarter: 2021Q1

REPORT INFORMATION
  Report Type: Spontaneous
  Country: IN (occurrence: IN)
  Receive Date: 20210211
  Receipt Date: 20210211
  Transmission Date: 20210420
  Serious: Yes (Hospitalization, Other)
  Sender: FDA-Public Use
  Company Number: IN-ALKEM LABORATORIES LIMITED-IN-ALKEM-2020-09060

PATIENT
  Age: 24 Year
  Sex: Female
  Weight: 40 kg

DRUGS (9)
  1. PIPERACILLINE, TAZOBACTAM [Suspect]
     Active Substance: PIPERACILLIN SODIUM\TAZOBACTAM SODIUM
     Indication: ENDOCARDITIS
     Dosage: 4.5 GRAM, QID
     Route: 042
  2. CEFTRIAXONE. [Suspect]
     Active Substance: CEFTRIAXONE
     Indication: ENDOCARDITIS
     Dosage: 1 GRAM
     Route: 042
  3. T.FUROSEMIDE [Concomitant]
     Indication: ENDOCARDITIS
     Dosage: 40 MILLIGRAM
     Route: 065
  4. LINEZOLID. [Suspect]
     Active Substance: LINEZOLID
     Indication: ENDOCARDITIS
     Dosage: 600 MILLIGRAM, BID
     Route: 042
     Dates: start: 2019, end: 2019
  5. T.DIGOXIN [Concomitant]
     Indication: ENDOCARDITIS
     Dosage: 0.25 MILLIGRAM
     Route: 065
  6. T.ASPIRIN [Concomitant]
     Indication: ENDOCARDITIS
     Dosage: 150 MILLIGRAM
     Route: 065
  7. LINEZOLID. [Suspect]
     Active Substance: LINEZOLID
     Dosage: UNK
     Route: 065
     Dates: start: 2019, end: 2019
  8. LINEZOLID. [Suspect]
     Active Substance: LINEZOLID
     Dosage: 20 MILLIGRAM, ONCE WEEKLY
     Route: 065
     Dates: start: 2019, end: 2019
  9. T.ACENOCOUMAROL [Concomitant]
     Indication: ENDOCARDITIS
     Dosage: 2 MILLIGRAM
     Route: 065

REACTIONS (4)
  - Drug ineffective [Unknown]
  - Skin hyperpigmentation [Recovered/Resolved]
  - Rash maculo-papular [Recovered/Resolved]
  - Hyperchromic anaemia [Unknown]

NARRATIVE: CASE EVENT DATE: 201905
